FAERS Safety Report 7880250-2 (Version None)
Quarter: 2011Q4

REPORT INFORMATION
  Report Type: 
  Country: None (occurrence: None)
  Receive Date: 20111101
  Receipt Date: 20100615
  Transmission Date: 20120403
  Serious: No
  Sender: FDA-Public Use
  Company Number: US-BAYER-201025755NA

PATIENT
  Age: 45 Year
  Sex: Female

DRUGS (4)
  1. AVELOX [Suspect]
     Indication: SINUSITIS
     Dosage: UNK
     Route: 048
     Dates: start: 20100610, end: 20100615
  2. ALBUTEROL [Concomitant]
  3. NASONEX [Concomitant]
  4. ZYRTEC [Concomitant]

REACTIONS (4)
  - DIZZINESS [None]
  - NAUSEA [None]
  - RASH [None]
  - DIARRHOEA [None]
